FAERS Safety Report 10523192 (Version 3)
Quarter: 2015Q1

REPORT INFORMATION
  Report Type: Spontaneous
  Country: JP (occurrence: JP)
  Receive Date: 20141016
  Receipt Date: 20150102
  Transmission Date: 20150720
  Serious: Yes (Hospitalization)
  Sender: FDA-Public Use
  Company Number: JP-PFIZER INC-2014280272

PATIENT
  Age: 34 Year
  Sex: Male
  Weight: 50 kg

DRUGS (1)
  1. FOSPHENYTOIN SODIUM. [Suspect]
     Active Substance: FOSPHENYTOIN SODIUM
     Indication: EPILEPSY
     Dosage: 10 ML X 1
     Route: 042
     Dates: start: 20141006, end: 20141006

REACTIONS (1)
  - Cardiac failure acute [Recovering/Resolving]

NARRATIVE: CASE EVENT DATE: 20141006
